FAERS Safety Report 8265721-1 (Version None)
Quarter: 2012Q2

REPORT INFORMATION
  Report Type: 
  Country: None (occurrence: None)
  Receive Date: 20120406
  Receipt Date: 20120330
  Transmission Date: 20120825
  Serious: Yes (Other)
  Sender: FDA-Public Use
  Company Number: US-ASTRAZENECA-2011SE49415

PATIENT
  Age: 45 Year
  Sex: Female

DRUGS (3)
  1. PROZAC [Concomitant]
  2. NEXIUM [Suspect]
     Route: 048
  3. NEXIUM [Suspect]
     Indication: HIATUS HERNIA
     Route: 048

REACTIONS (6)
  - DRUG INEFFECTIVE [None]
  - HIATUS HERNIA [None]
  - SYSTEMIC LUPUS ERYTHEMATOSUS [None]
  - INTENTIONAL DRUG MISUSE [None]
  - DRUG PRESCRIBING ERROR [None]
  - MALIGNANT MELANOMA [None]
